FAERS Safety Report 7131299-9 (Version None)
Quarter: 2010Q4

REPORT INFORMATION
  Report Type: 
  Country: None (occurrence: None)
  Receive Date: 20101201
  Receipt Date: 20101124
  Transmission Date: 20110411
  Serious: Yes (Other)
  Sender: FDA-Public Use
  Company Number: US-US-EMD SERONO, INC.-231191J09USA

PATIENT
  Sex: Female
  Weight: 113 kg

DRUGS (8)
  1. REBIF [Suspect]
     Indication: RELAPSING-REMITTING MULTIPLE SCLEROSIS
     Route: 058
     Dates: start: 20090518, end: 20091223
  2. UNSPECIFIED MEDICATION [Concomitant]
     Route: 065
  3. UNSPECIFIED CHOLESTEROL MEDICATION [Concomitant]
     Indication: BLOOD CHOLESTEROL INCREASED
     Route: 065
     Dates: end: 20090101
  4. UNSPECIFIED THYROID MEDICATION [Concomitant]
     Route: 065
  5. SERTRALINE HYDROCHLORIDE [Concomitant]
     Indication: DEPRESSION
     Route: 048
  6. ARICEPT [Concomitant]
     Indication: COGNITIVE DISORDER
     Route: 048
  7. LEVOTHYROXINE [Concomitant]
     Indication: HYPOTHYROIDISM
     Route: 048
  8. AMLODIPINE [Concomitant]
     Indication: HYPERTENSION
     Route: 048

REACTIONS (4)
  - CUSHING'S SYNDROME [None]
  - DIABETES MELLITUS [None]
  - EMOTIONAL DISORDER [None]
  - HEPATIC ENZYME INCREASED [None]
